FAERS Safety Report 6395513-X (Version None)
Quarter: 2009Q4

REPORT INFORMATION
  Report Type: 
  Country: None (occurrence: None)
  Receive Date: 20091007
  Receipt Date: 20091001
  Transmission Date: 20100525
  Serious: Yes (Death, Hospitalization)
  Sender: FDA-Public Use
  Company Number: 2009-4091

PATIENT
  Sex: Male

DRUGS (1)
  1. APOKYN [Suspect]
     Indication: PARKINSON'S DISEASE

REACTIONS (2)
  - INFECTION [None]
  - URETHRAL PERFORATION [None]
